FAERS Safety Report 9557479 (Version 1)
Quarter: 2013Q3

REPORT INFORMATION
  Report Type: Spontaneous
  Country: US (occurrence: None)
  Receive Date: 20130726
  Receipt Date: 20130726
  Transmission Date: 20140515
  Serious: Yes (Hospitalization)
  Sender: FDA-Public Use
  Company Number: UTC-019882

PATIENT
  Age: 61 Year
  Sex: Female
  Weight: 51.82 kg

DRUGS (3)
  1. REMODULIN [Suspect]
     Indication: PULMONARY ARTERIAL HYPERTENSION
     Route: 042
     Dates: start: 20060609
  2. REVATIO (SILDENAFIL CITRATE) [Concomitant]
  3. DIURETICS (DIURTICS) [Concomitant]

REACTIONS (1)
  - Device related infection [None]
